FAERS Safety Report 8764311 (Version 1)
Quarter: 2012Q4

REPORT INFORMATION
  Report Type: 
  Country: US (occurrence: US)
  Receive Date: 20120831
  Receipt Date: 20120831
  Transmission Date: 20130627
  Serious: Yes (Other)
  Sender: FDA-Public Use
  Company Number: US-PFIZER INC-2012211741

PATIENT
  Age: 64 Year
  Sex: Female
  Weight: 61.5 kg

DRUGS (4)
  1. LIPITOR [Suspect]
     Indication: BLOOD CHOLESTEROL ABNORMAL
     Dosage: 40 mg (by cutting 80 mg into half), 1x/day
     Route: 048
     Dates: end: 201207
  2. LIPITOR [Suspect]
     Dosage: 40 mg (by cutting 80 mg into half), 1x/day
     Route: 048
     Dates: start: 201207, end: 20120827
  3. ATORVASTATIN CALCIUM [Suspect]
     Indication: BLOOD CHOLESTEROL ABNORMAL
     Dosage: UNK
     Dates: start: 201207, end: 201207
  4. MULTIVITAMINS [Concomitant]
     Dosage: UNK

REACTIONS (3)
  - Palpitations [Recovered/Resolved]
  - Headache [Recovered/Resolved]
  - Muscle twitching [Recovered/Resolved]
